FAERS Safety Report 9142588 (Version 2)
Quarter: 2013Q1

REPORT INFORMATION
  Report Type: Report from Study
  Country: DE (occurrence: DE)
  Receive Date: 20130306
  Receipt Date: 20130318
  Transmission Date: 20140127
  Serious: Yes (Hospitalization)
  Sender: FDA-Public Use
  Company Number: DE-009507513-1303DEU001344

PATIENT
  Age: 25 Year
  Sex: Male

DRUGS (7)
  1. MK-0000 [Suspect]
  2. NILOTINIB [Suspect]
     Indication: CHRONIC MYELOID LEUKAEMIA
     Dosage: 300 MG, BID
     Route: 048
     Dates: start: 20120820, end: 20120913
  3. NILOTINIB [Suspect]
     Dosage: 450 MG, QD
     Route: 048
     Dates: start: 20120920
  4. IBUPROFEN [Concomitant]
     Dosage: 600 MG, BID
     Route: 048
     Dates: start: 20130228
  5. PANTOZOL [Concomitant]
     Dosage: 40 MG, QD
     Route: 048
     Dates: start: 20130228
  6. NOVALGIN (ACETAMINOPHEN (+) CAFFEINE (+) PROPYPHENAZONE) [Concomitant]
     Dosage: 500 MG 4*2
     Route: 048
     Dates: start: 20130228
  7. CLEXANE (ENOXAPARIN SODIUM) [Concomitant]
     Dosage: 0.4 ML, QD
     Route: 058
     Dates: start: 20130228

REACTIONS (1)
  - Ligament rupture [Recovered/Resolved]
